FAERS Safety Report 10006269 (Version 1)
Quarter: 2014Q1

REPORT INFORMATION
  Report Type: Spontaneous
  Country: US (occurrence: US)
  Receive Date: 20140313
  Receipt Date: 20140313
  Transmission Date: 20141002
  Serious: Yes (Hospitalization)
  Sender: FDA-Public Use
  Company Number: US-BAYER-2014-037102

PATIENT
  Age: 26 Year
  Sex: Female
  Weight: 77.1 kg

DRUGS (8)
  1. YAZ [Suspect]
  2. TOPAMAX [Concomitant]
     Dosage: 25 MG, BID
     Route: 048
  3. TERBINAFINE [Concomitant]
     Dosage: 250 MG, UNK
  4. TREXIMET [Concomitant]
     Dosage: 85/500 MG
  5. LISINOPRIL [Concomitant]
     Dosage: DAILY
     Route: 048
  6. DILAUDID [Concomitant]
  7. PERCOCET [Concomitant]
  8. FRAGMIN [Concomitant]
     Indication: PULMONARY EMBOLISM

REACTIONS (1)
  - Pulmonary embolism [None]
